FAERS Safety Report 7294300-8 (Version None)
Quarter: 2011Q1

REPORT INFORMATION
  Report Type: 
  Country: None (occurrence: None)
  Receive Date: 20110215
  Receipt Date: 20110209
  Transmission Date: 20110831
  Serious: Yes (Death, Life-Threatening, Hospitalization, Disabling)
  Sender: FDA-Public Use
  Company Number: US-MERCK-1102USA01200

PATIENT
  Age: 54 Year
  Sex: Male

DRUGS (6)
  1. LORAZEPAM [Concomitant]
     Route: 065
  2. CITALOPRAM [Concomitant]
     Route: 065
  3. BUPROPION HYDROCHLORIDE [Concomitant]
     Route: 065
  4. JANUVIA [Suspect]
     Route: 048
  5. METFORMIN [Concomitant]
     Route: 065
  6. HYDROCODONE [Concomitant]
     Route: 065

REACTIONS (2)
  - DEATH [None]
  - OVERDOSE [None]
